FAERS Safety Report 8118707-1 (Version None)
Quarter: 2011Q4

REPORT INFORMATION
  Report Type: 
  Country: None (occurrence: None)
  Receive Date: 20111227
  Receipt Date: 20111017
  Transmission Date: 20120403
  Serious: No
  Sender: FDA-Public Use
  Company Number: PHEH2011US07103

PATIENT
  Age: 46 Year
  Sex: Female
  Weight: 80.3 kg

DRUGS (9)
  1. GILENYA [Suspect]
     Dosage: 0.5 MG, DAILY, ORAL
     Route: 048
  2. LISINOPRIL [Concomitant]
  3. KLONOPIN [Concomitant]
  4. NEURONTIN [Concomitant]
  5. SIMVASTATIN [Concomitant]
  6. NADOLOL [Concomitant]
  7. AMBIEN [Concomitant]
  8. METFORMI (METFORMIN) [Concomitant]
  9. CELEXA [Concomitant]

REACTIONS (5)
  - DIARRHOEA [None]
  - APPETITE DISORDER [None]
  - CONSTIPATION [None]
  - NAUSEA [None]
  - WEIGHT DECREASED [None]
